FAERS Safety Report 25788632 (Version 1)
Quarter: 2025Q3

REPORT INFORMATION
  Report Type: Spontaneous
  Country: US (occurrence: US)
  Receive Date: 20250910
  Receipt Date: 20250910
  Transmission Date: 20251021
  Serious: No
  Sender: SANDOZ
  Company Number: US-SANDOZ-SDZ2025US064265

PATIENT
  Sex: Female

DRUGS (2)
  1. RECLAST [Suspect]
     Active Substance: ZOLEDRONIC ACID
     Indication: Product used for unknown indication
     Dosage: Q12MO(ONCE A YEAR)
     Route: 065
     Dates: start: 20250829
  2. RECLAST [Suspect]
     Active Substance: ZOLEDRONIC ACID
     Dosage: Q12MO(ONCE A YEAR)
     Route: 065
     Dates: start: 20250830

REACTIONS (9)
  - Musculoskeletal disorder [Unknown]
  - Pyrexia [Unknown]
  - Headache [Unknown]
  - Bone pain [Unknown]
  - Arthralgia [Unknown]
  - Dizziness [Unknown]
  - Nausea [Unknown]
  - Vomiting [Unknown]
  - Pain in extremity [Unknown]
